FAERS Safety Report 21228743 (Version 2)
Quarter: 2022Q4

REPORT INFORMATION
  Report Type: Spontaneous
  Country: US (occurrence: US)
  Receive Date: 20220818
  Receipt Date: 20221012
  Transmission Date: 20230112
  Serious: No
  Sender: FDA-Public Use
  Company Number: US-PFIZER INC-202201041439

PATIENT
  Age: 8 Year
  Sex: Male
  Weight: 23.13 kg

DRUGS (1)
  1. GENOTROPIN [Suspect]
     Active Substance: SOMATROPIN
     Indication: Short stature
     Dosage: ALTERNATING BETWEEN 0.8MG AND 1.0MG EVERY OTHER DAY

REACTIONS (3)
  - Device breakage [Unknown]
  - Device leakage [Unknown]
  - Product odour abnormal [Unknown]
